FAERS Safety Report 6189971-3 (Version None)
Quarter: 2009Q2

REPORT INFORMATION
  Report Type: 
  Country: None (occurrence: None)
  Receive Date: 20090514
  Receipt Date: 20090505
  Transmission Date: 20091009
  Serious: Yes (Other)
  Sender: FDA-Public Use
  Company Number: PHHY2009BE16446

PATIENT
  Sex: Male

DRUGS (6)
  1. ALISKIREN ALI+ [Suspect]
     Indication: HYPERTENSION
     Dosage: 300 MG
     Route: 048
     Dates: start: 20080901, end: 20081125
  2. SEROXAT ^CIBA-GEIGY^ [Concomitant]
     Dosage: 30 MG
  3. GLUCOPHAGE [Concomitant]
     Dosage: 850 MG, BID
  4. DIAMICRON [Concomitant]
     Dosage: UNK
  5. LEVOTHYROXINE SODIUM [Concomitant]
  6. KERLONE [Concomitant]
     Dosage: 100 MG

REACTIONS (2)
  - PALPITATIONS [None]
  - TACHYCARDIA [None]
